FAERS Safety Report 20297891 (Version 2)
Quarter: 2022Q1

REPORT INFORMATION
  Report Type: Spontaneous
  Country: FR (occurrence: FR)
  Receive Date: 20220105
  Receipt Date: 20220214
  Transmission Date: 20220423
  Serious: Yes (Hospitalization, Other)
  Sender: FDA-Public Use
  Company Number: None

PATIENT
  Age: 23 Year
  Sex: Male

DRUGS (5)
  1. IRBESARTAN [Suspect]
     Active Substance: IRBESARTAN
     Indication: Product used for unknown indication
     Dosage: 450 MG, QD (150MG 3 FOIS/J)
     Route: 048
  2. AMLODIPINE BESYLATE [Suspect]
     Active Substance: AMLODIPINE BESYLATE
     Indication: Product used for unknown indication
     Dosage: 5 MG, QD (5MG/J)
     Route: 048
  3. RABEPRAZOLE [Suspect]
     Active Substance: RABEPRAZOLE
     Indication: Product used for unknown indication
     Dosage: 10 MG, QD (10MG/J)
     Route: 048
  4. IDEBENONE [Suspect]
     Active Substance: IDEBENONE
     Indication: Product used for unknown indication
     Dosage: 450 MG, QD (150MG 3 FOIS/J)
     Route: 048
  5. RENVELA [Suspect]
     Active Substance: SEVELAMER CARBONATE
     Indication: Product used for unknown indication
     Dosage: 4.8 G, QD(1600 MG 3 FOIS/JOUR)
     Route: 048
     Dates: end: 202112

REACTIONS (1)
  - Cholestasis [Recovering/Resolving]

NARRATIVE: CASE EVENT DATE: 20210701
